FAERS Safety Report 16378783 (Version 1)
Quarter: 2019Q2

REPORT INFORMATION
  Report Type: Report from Study
  Country: DE (occurrence: DE)
  Receive Date: 20190531
  Receipt Date: 20190531
  Transmission Date: 20190711
  Serious: Yes (Death, Other)
  Sender: FDA-Public Use
  Company Number: DE-MYLANLABS-2019M1050272

PATIENT
  Age: 77 Year
  Sex: Female
  Weight: 91 kg

DRUGS (2)
  1. TRASTUZUMAB. [Suspect]
     Active Substance: TRASTUZUMAB
     Dosage: DAILY DOSE: 600 MG MILLGRAM(S) EVERY 3 WEEKS
     Route: 058
     Dates: start: 20150908, end: 20151006
  2. TRASTUZUMAB. [Suspect]
     Active Substance: TRASTUZUMAB
     Indication: HER-2 POSITIVE BREAST CANCER
     Dosage: 600 MILLIGRAM, Q3W
     Route: 058
     Dates: start: 20141126, end: 20150729

REACTIONS (4)
  - Neutropenia [Not Recovered/Not Resolved]
  - General physical health deterioration [Not Recovered/Not Resolved]
  - Pneumonia [Not Recovered/Not Resolved]
  - Acute leukaemia [Fatal]

NARRATIVE: CASE EVENT DATE: 20151006
